FAERS Safety Report 12221540 (Version 1)
Quarter: 2016Q1

REPORT INFORMATION
  Report Type: Spontaneous
  Country: JP (occurrence: JP)
  Receive Date: 20160330
  Receipt Date: 20160330
  Transmission Date: 20160526
  Serious: Yes (Other)
  Sender: FDA-Public Use
  Company Number: JP-PFIZER INC-2016175891

PATIENT
  Sex: Female

DRUGS (3)
  1. AMLODIN [Suspect]
     Active Substance: AMLODIPINE BESYLATE
     Dosage: 2.5 MG, DAILY
     Route: 048
  2. MAGNESIUM OXIDE. [Concomitant]
     Active Substance: MAGNESIUM OXIDE
     Dosage: UNK
     Route: 048
  3. LENDORMIN [Concomitant]
     Active Substance: BROTIZOLAM
     Dosage: UNK
     Route: 048

REACTIONS (3)
  - Red blood cell count decreased [Unknown]
  - Platelet count decreased [Unknown]
  - White blood cell count decreased [Unknown]

NARRATIVE: CASE EVENT DATE: 201511
